FAERS Safety Report 15952432 (Version 1)
Quarter: 2019Q1

REPORT INFORMATION
  Report Type: Report from Study
  Country: None (occurrence: US)
  Receive Date: 20190212
  Receipt Date: 20190212
  Transmission Date: 20190417
  Serious: Yes (Other)
  Sender: FDA-Public Use
  Company Number: US-ABBVIE-19K-163-2658117-00

PATIENT
  Age: 51 Year
  Sex: Female

DRUGS (1)
  1. HUMIRA [Suspect]
     Active Substance: ADALIMUMAB
     Indication: RHEUMATOID ARTHRITIS
     Route: 058

REACTIONS (7)
  - Nasopharyngitis [Unknown]
  - Pneumonia [Unknown]
  - Ovarian cyst [Unknown]
  - Chronic obstructive pulmonary disease [Unknown]
  - Ligament operation [Unknown]
  - Cholelithiasis [Unknown]
  - Injection site pain [Unknown]

NARRATIVE: CASE EVENT DATE: 201707
